FAERS Safety Report 7300833-8 (Version None)
Quarter: 2011Q1

REPORT INFORMATION
  Report Type: 
  Country: None (occurrence: None)
  Receive Date: 20110218
  Receipt Date: 20110124
  Transmission Date: 20110831
  Serious: Yes (Hospitalization, Other)
  Sender: FDA-Public Use
  Company Number: US-AMGEN-USASP2010008970

PATIENT
  Age: 23 Year
  Sex: Male

DRUGS (4)
  1. NPLATE [Suspect]
     Dates: start: 20090317
  2. IMMUNOGLOBULINS [Concomitant]
  3. CORTICOSTEROIDS [Concomitant]
  4. NPLATE [Suspect]
     Indication: IDIOPATHIC THROMBOCYTOPENIC PURPURA
     Dosage: 2 A?G/KG, UNK
     Dates: start: 20090317, end: 20101212

REACTIONS (4)
  - MALAISE [None]
  - PLATELET COUNT DECREASED [None]
  - BONE MARROW DISORDER [None]
  - GINGIVAL BLEEDING [None]
